FAERS Safety Report 6788766-7 (Version None)
Quarter: 2010Q2

REPORT INFORMATION
  Report Type: 
  Country: None (occurrence: None)
  Receive Date: 20100623
  Receipt Date: 20080514
  Transmission Date: 20101027
  Serious: No
  Sender: FDA-Public Use
  Company Number: US-PFIZER INC-2008042191

PATIENT
  Sex: Male
  Weight: 93.181 kg

DRUGS (2)
  1. GENOTROPIN [Suspect]
     Indication: DWARFISM
     Dates: start: 20080101, end: 20080501
  2. ALL OTHER THERAPEUTIC PRODUCTS [Concomitant]

REACTIONS (1)
  - ARTHRITIS [None]
